FAERS Safety Report 19588952 (Version 2)
Quarter: 2021Q3

REPORT INFORMATION
  Report Type: Spontaneous
  Country: US (occurrence: US)
  Receive Date: 20210721
  Receipt Date: 20210907
  Transmission Date: 20211014
  Serious: Yes (Hospitalization, Other)
  Sender: FDA-Public Use
  Company Number: NVSC2021US148572

PATIENT
  Age: 27 Year

DRUGS (2)
  1. RITUXIMAB. [Suspect]
     Active Substance: RITUXIMAB
     Indication: PRODUCT USED FOR UNKNOWN INDICATION
     Dosage: 1 G
     Route: 065
     Dates: start: 201705
  2. KESIMPTA [Suspect]
     Active Substance: OFATUMUMAB
     Indication: PRODUCT USED FOR UNKNOWN INDICATION
     Dosage: UNK
     Route: 058
     Dates: start: 201801

REACTIONS (11)
  - Influenza like illness [Unknown]
  - Urticaria [Unknown]
  - Throat tightness [Unknown]
  - Pyrexia [Unknown]
  - Renal failure [Unknown]
  - Serum sickness [Unknown]
  - Arthralgia [Unknown]
  - COVID-19 [Recovered/Resolved]
  - Thrombocytopenia [Unknown]
  - Rash maculo-papular [Unknown]
  - Pruritus [Unknown]

NARRATIVE: CASE EVENT DATE: 201705
